FAERS Safety Report 7170980-2 (Version None)
Quarter: 2010Q4

REPORT INFORMATION
  Report Type: 
  Country: None (occurrence: None)
  Receive Date: 20101217
  Receipt Date: 20101206
  Transmission Date: 20110411
  Serious: Yes (Other)
  Sender: FDA-Public Use
  Company Number: US-MERCK-1010USA01859

PATIENT
  Age: 37 Year
  Sex: Female

DRUGS (4)
  1. ISENTRESS [Suspect]
     Route: 048
  2. KALETRA [Suspect]
     Route: 048
  3. BARACLUDE [Suspect]
     Route: 048
  4. EPZICOM [Suspect]
     Route: 048

REACTIONS (2)
  - ABORTION INDUCED [None]
  - DRUG EXPOSURE DURING PREGNANCY [None]
